FAERS Safety Report 5557231-7 (Version None)
Quarter: 2007Q4

REPORT INFORMATION
  Report Type: 
  Country: None (occurrence: None)
  Receive Date: 20071214
  Receipt Date: 20071210
  Transmission Date: 20080405
  Serious: Yes (Other)
  Sender: FDA-Public Use
  Company Number: US-BRISTOL-MYERS SQUIBB COMPANY-14011316

PATIENT
  Age: 47 Year
  Sex: Male

DRUGS (2)
  1. DIMETICONE [Suspect]
     Indication: RETINAL TEAR
  2. GATIFLOXACIN [Suspect]
     Indication: CORNEAL DEFECT

REACTIONS (3)
  - CORNEAL PERFORATION [None]
  - POSTERIOR CAPSULE OPACIFICATION [None]
  - PUPILLARY REFLEX IMPAIRED [None]
